FAERS Safety Report 19181285 (Version 4)
Quarter: 2021Q2

REPORT INFORMATION
  Report Type: Spontaneous
  Country: US (occurrence: US)
  Receive Date: 20210426
  Receipt Date: 20210625
  Transmission Date: 20210717
  Serious: Yes (Death, Hospitalization, Other)
  Sender: FDA-Public Use
  Company Number: US-ASTRAZENECA-2021A356375

PATIENT
  Weight: 69.8 kg

DRUGS (5)
  1. NEXIUM 24HR [Suspect]
     Active Substance: ESOMEPRAZOLE MAGNESIUM
     Indication: GASTROOESOPHAGEAL REFLUX DISEASE
     Dosage: 20 MG, QD
     Route: 048
     Dates: start: 2010, end: 2015
  2. PREVACID 24 HR [Suspect]
     Active Substance: LANSOPRAZOLE
     Indication: GASTROOESOPHAGEAL REFLUX DISEASE
     Dosage: 20 MG, QD
     Route: 065
     Dates: start: 2010, end: 2015
  3. PREVACID [Suspect]
     Active Substance: LANSOPRAZOLE
     Indication: GASTROOESOPHAGEAL REFLUX DISEASE
     Dosage: 20 MG, QD
     Route: 065
     Dates: start: 2010, end: 2015
  4. NEXIUM [Suspect]
     Active Substance: ESOMEPRAZOLE MAGNESIUM
     Indication: GASTROOESOPHAGEAL REFLUX DISEASE
     Dosage: 20 MG, QD
     Route: 048
     Dates: start: 2010, end: 2015
  5. NEXIUM [Suspect]
     Active Substance: ESOMEPRAZOLE MAGNESIUM
     Indication: GASTROOESOPHAGEAL REFLUX DISEASE
     Route: 048

REACTIONS (26)
  - Acute kidney injury [Unknown]
  - Dysuria [Unknown]
  - Anuria [Unknown]
  - Chronic kidney disease [Unknown]
  - Glomerulonephritis [Unknown]
  - Renal transplant [Unknown]
  - Renal impairment [Unknown]
  - Chronic kidney disease-mineral and bone disorder [Unknown]
  - Diabetic nephropathy [Unknown]
  - Azotaemia [Unknown]
  - Nephropathy [Unknown]
  - Oliguria [Unknown]
  - Renal failure [Unknown]
  - Haemodialysis [Unknown]
  - End stage renal disease [Fatal]
  - Dialysis [Unknown]
  - Nephrosclerosis [Unknown]
  - Renal atrophy [Unknown]
  - Nephrogenic anaemia [Unknown]
  - Hypertensive nephropathy [Unknown]
  - Nephrolithiasis [Unknown]
  - Device dependence [Unknown]
  - Acute respiratory failure [Fatal]
  - Cardiac failure congestive [Fatal]
  - Renal disorder [Unknown]
  - Renal artery stenosis [Unknown]
